FAERS Safety Report 17481687 (Version 1)
Quarter: 2020Q1

REPORT INFORMATION
  Report Type: Report from Study
  Country: US (occurrence: US)
  Receive Date: 20200302
  Receipt Date: 20200302
  Transmission Date: 20200409
  Serious: Yes (Other)
  Sender: FDA-Public Use
  Company Number: NVSC2020US058570

PATIENT
  Age: 30 Year
  Sex: Female
  Weight: 59.1 kg

DRUGS (31)
  1. ALBUTEROL. [Concomitant]
     Active Substance: ALBUTEROL
     Indication: CYSTIC FIBROSIS LUNG
     Dosage: 1 DF, BID
     Route: 065
     Dates: start: 20160301
  2. CREON [Concomitant]
     Active Substance: PANCRELIPASE AMYLASE\PANCRELIPASE LIPASE\PANCRELIPASE PROTEASE
     Indication: PANCREATIC FAILURE
     Dosage: 4 DOSAGE FORM, TID
     Route: 048
     Dates: start: 20110901
  3. MAGNESIUM OXIDE. [Concomitant]
     Active Substance: MAGNESIUM OXIDE
     Indication: PANCREATIC FAILURE
  4. OCEAN SALINE NASAL SPRAY [Concomitant]
     Active Substance: SODIUM CHLORIDE
     Indication: SINUS DISORDER
  5. OYSTERCAL [Concomitant]
     Indication: PANCREATIC FAILURE
  6. TOBRAMYCIN. [Suspect]
     Active Substance: TOBRAMYCIN
     Indication: CYSTIC FIBROSIS LUNG
     Dosage: 300 MG, BID
     Route: 065
  7. COLACE [Concomitant]
     Active Substance: DOCUSATE SODIUM
     Indication: CYSTIC FIBROSIS
     Dosage: 1 DF, BID WHEN NEEDED
     Route: 048
     Dates: start: 20170118
  8. POLYETHYLENE GLYCOL [Concomitant]
     Active Substance: POLYETHYLENE GLYCOLS
     Indication: PANCREATIC FAILURE
  9. PROAIR HFA [Concomitant]
     Active Substance: ALBUTEROL SULFATE
     Indication: CYSTIC FIBROSIS LUNG
     Dosage: 2 DF, TID
     Route: 065
     Dates: start: 20140513, end: 20170518
  10. OMEPRAZOLE. [Concomitant]
     Active Substance: OMEPRAZOLE
     Indication: CYSTIC FIBROSIS LUNG
     Dosage: 40 MG, BID
     Route: 048
     Dates: start: 20120515
  11. OCEAN SALINE NASAL SPRAY [Concomitant]
     Active Substance: SODIUM CHLORIDE
     Indication: CYSTIC FIBROSIS
     Dosage: 2 DF (SPRAY), QHS
     Route: 045
     Dates: start: 20150218, end: 20170518
  12. ADVAIR HFA [Concomitant]
     Active Substance: FLUTICASONE PROPIONATE\SALMETEROL XINAFOATE
     Indication: CYSTIC FIBROSIS LUNG
     Dosage: 1 PUFF, UNK UNK, BID
     Route: 065
     Dates: start: 20170118
  13. VITAMIN B1 [Concomitant]
     Active Substance: THIAMINE HYDROCHLORIDE
     Indication: CYSTIC FIBROSIS
     Dosage: 100 MG
     Route: 048
     Dates: start: 20140923, end: 20170518
  14. FLUTICASONE. [Concomitant]
     Active Substance: FLUTICASONE
     Indication: CYSTIC FIBROSIS
     Dosage: 50 MICROGRAM, QD, 2 SPRAYS
     Route: 045
     Dates: start: 20151027
  15. DEKA [Concomitant]
     Indication: CYSTIC FIBROSIS
     Dosage: 1 DF, BID
     Route: 048
     Dates: start: 20110901, end: 20170518
  16. VITAMIN A [Concomitant]
     Active Substance: VITAMIN A
     Indication: CYSTIC FIBROSIS
     Dosage: 1 DF, TID
     Route: 048
     Dates: start: 20130122
  17. CAYSTON [Concomitant]
     Active Substance: AZTREONAM
     Indication: CYSTIC FIBROSIS LUNG
     Dosage: 75 MG, TID
     Route: 065
     Dates: start: 20140923, end: 20170515
  18. CREON [Concomitant]
     Active Substance: PANCRELIPASE AMYLASE\PANCRELIPASE LIPASE\PANCRELIPASE PROTEASE
     Indication: CYSTIC FIBROSIS
     Dosage: 6 DOSAGE FORM, TID
     Route: 048
     Dates: start: 20110901
  19. FLUTICASONE. [Concomitant]
     Active Substance: FLUTICASONE
     Indication: SINUS DISORDER
  20. MAGNESIUM OXIDE. [Concomitant]
     Active Substance: MAGNESIUM OXIDE
     Indication: CYSTIC FIBROSIS
     Dosage: 400 MILLIGRAM, BID
     Route: 048
     Dates: start: 20140923
  21. VITAMIN A [Concomitant]
     Active Substance: VITAMIN A
     Indication: PANCREATIC FAILURE
  22. ZOLPIDEM [Concomitant]
     Active Substance: ZOLPIDEM TARTRATE
     Indication: SLEEP DISORDER
     Dosage: 5 MILLIGRAM
     Route: 065
     Dates: start: 20130527, end: 20170518
  23. POLYETHYLENE GLYCOL [Concomitant]
     Active Substance: POLYETHYLENE GLYCOLS
     Indication: CYSTIC FIBROSIS
     Dosage: 17 G, QD
     Route: 048
     Dates: start: 20120208, end: 20170518
  24. COLACE [Concomitant]
     Active Substance: DOCUSATE SODIUM
     Indication: PANCREATIC FAILURE
  25. PULMOSAL [Concomitant]
     Active Substance: SODIUM CHLORIDE
     Indication: CYSTIC FIBROSIS LUNG
     Dosage: 4 ML, TID
     Route: 065
     Dates: start: 20110901, end: 20170518
  26. PULMOZYME [Concomitant]
     Active Substance: DORNASE ALFA
     Indication: CYSTIC FIBROSIS LUNG
     Dosage: 2.5 MG, BID
     Route: 065
     Dates: start: 20110823, end: 20170518
  27. DEKA [Concomitant]
     Indication: PANCREATIC FAILURE
  28. VITAMIN B1 [Concomitant]
     Active Substance: THIAMINE HYDROCHLORIDE
     Indication: PANCREATIC FAILURE
  29. SYMBICORT [Concomitant]
     Active Substance: BUDESONIDE\FORMOTEROL FUMARATE DIHYDRATE
     Indication: CYSTIC FIBROSIS LUNG
     Dosage: 2 DF, BID
     Route: 065
     Dates: end: 20170518
  30. MUPIROCIN. [Concomitant]
     Active Substance: MUPIROCIN
     Indication: PRODUCT USED FOR UNKNOWN INDICATION
     Route: 061
  31. OYSTERCAL [Concomitant]
     Indication: CYSTIC FIBROSIS
     Dosage: UNK
     Route: 065
     Dates: start: 20131217, end: 20170518

REACTIONS (1)
  - Infective pulmonary exacerbation of cystic fibrosis [Recovered/Resolved]

NARRATIVE: CASE EVENT DATE: 20170519
